FAERS Safety Report 5456911-1 (Version None)
Quarter: 2007Q3

REPORT INFORMATION
  Report Type: 
  Country: None (occurrence: None)
  Receive Date: 20070918
  Receipt Date: 20061204
  Transmission Date: 20080115
  Serious: No
  Sender: FDA-Public Use
  Company Number: US-ASTRAZENECA-2006UW26974

PATIENT
  Age: 40 Year
  Sex: Female
  Weight: 78.9 kg

DRUGS (2)
  1. SEROQUEL [Suspect]
     Indication: BIPOLAR DISORDER
     Dosage: TITRATING TO 300 MG
     Route: 048
  2. ATIVAN [Concomitant]

REACTIONS (4)
  - DIZZINESS POSTURAL [None]
  - MYALGIA [None]
  - NASAL CONGESTION [None]
  - RESTLESSNESS [None]
